FAERS Safety Report 24933037 (Version 3)
Quarter: 2025Q2

REPORT INFORMATION
  Report Type: Spontaneous
  Country: US (occurrence: US)
  Receive Date: 20250206
  Receipt Date: 20250505
  Transmission Date: 20250716
  Serious: Yes (Hospitalization, Other)
  Sender: SANOFI AVENTIS
  Company Number: US-SA-2025SA034823

PATIENT
  Age: 60 Year
  Sex: Female

DRUGS (3)
  1. DUPIXENT [Suspect]
     Active Substance: DUPILUMAB
     Indication: Asthma
     Dosage: 300 MG, QOW
     Route: 058
     Dates: start: 202203
  2. DUPIXENT [Suspect]
     Active Substance: DUPILUMAB
     Indication: Chronic obstructive pulmonary disease
  3. AZITHROMYCIN [Suspect]
     Active Substance: AZITHROMYCIN

REACTIONS (12)
  - Renal failure [Unknown]
  - Fracture [Unknown]
  - Fall [Unknown]
  - Neck mass [Not Recovered/Not Resolved]
  - Injection site mass [Unknown]
  - Product preparation error [Unknown]
  - Incorrect dose administered [Unknown]
  - Chronic obstructive pulmonary disease [Unknown]
  - Drug hypersensitivity [Unknown]
  - Throat tightness [Unknown]
  - Dysphagia [Unknown]
  - Bronchospasm [Unknown]

NARRATIVE: CASE EVENT DATE: 20220301
